FAERS Safety Report 14111088 (Version 1)
Quarter: 2017Q4

REPORT INFORMATION
  Report Type: Report from Study
  Country: GB (occurrence: GB)
  Receive Date: 20171020
  Receipt Date: 20171020
  Transmission Date: 20180321
  Serious: Yes (Other)
  Sender: FDA-Public Use
  Company Number: GB-UCBSA-2017041387

PATIENT
  Age: 46 Year
  Sex: Male

DRUGS (3)
  1. CARBIDOPA W/ENTACAPONE/LEVODOPA [Concomitant]
     Active Substance: CARBIDOPA\ENTACAPONE\LEVODOPA
     Indication: PRODUCT USED FOR UNKNOWN INDICATION
  2. ROTIGOTINE [Suspect]
     Active Substance: ROTIGOTINE
     Indication: PARKINSON^S DISEASE
     Dosage: UNK
  3. RASAGILINE. [Concomitant]
     Active Substance: RASAGILINE
     Indication: PRODUCT USED FOR UNKNOWN INDICATION

REACTIONS (30)
  - Decreased interest [Unknown]
  - Sleep talking [Unknown]
  - Memory impairment [Unknown]
  - Poor quality sleep [Unknown]
  - Anxiety [Unknown]
  - Sensory disturbance [Unknown]
  - Panic attack [Unknown]
  - Pain [Unknown]
  - Gastrointestinal motility disorder [Unknown]
  - Micturition urgency [Unknown]
  - Anal incontinence [Unknown]
  - Asthenia [Unknown]
  - Musculoskeletal stiffness [Unknown]
  - Dysphagia [Unknown]
  - Somnolence [Unknown]
  - Middle insomnia [Unknown]
  - Insomnia [Unknown]
  - Vomiting [Unknown]
  - Dizziness [Unknown]
  - Depressed mood [Unknown]
  - Weight abnormal [Unknown]
  - Drooling [Unknown]
  - Fall [Unknown]
  - Hyperhidrosis [Unknown]
  - Disturbance in attention [Unknown]
  - Nocturia [Unknown]
  - Stress [Unknown]
  - Choking [Unknown]
  - Malaise [Unknown]
  - Libido decreased [Unknown]
